FAERS Safety Report 7458918-1 (Version None)
Quarter: 2011Q2

REPORT INFORMATION
  Report Type: 
  Country: None (occurrence: None)
  Receive Date: 20110426
  Receipt Date: 20110412
  Transmission Date: 20111010
  Serious: Yes (Death, Hospitalization)
  Sender: FDA-Public Use
  Company Number: FK201100763

PATIENT
  Age: 64 Year
  Sex: Male

DRUGS (3)
  1. LEUCOVORIN CALCIUM [Suspect]
     Indication: METASTATIC GASTRIC CANCER
  2. FLUOROURACIL [Suspect]
     Indication: METASTATIC GASTRIC CANCER
  3. OXALIPLATIN [Suspect]
     Indication: METASTATIC GASTRIC CANCER

REACTIONS (6)
  - NEUROPATHY PERIPHERAL [None]
  - INTERSTITIAL LUNG DISEASE [None]
  - RESPIRATORY FAILURE [None]
  - THROMBOCYTOPENIA [None]
  - THERAPEUTIC RESPONSE DECREASED [None]
  - PLEURAL EFFUSION [None]
